FAERS Safety Report 11052942 (Version 1)
Quarter: 2015Q2

REPORT INFORMATION
  Report Type: Spontaneous
  Country: US (occurrence: US)
  Receive Date: 20150421
  Receipt Date: 20150421
  Transmission Date: 20150821
  Serious: Yes (Other)
  Sender: FDA-Public Use
  Company Number: US-GLAXOSMITHKLINE-US2015GSK052417

PATIENT
  Sex: Female

DRUGS (1)
  1. ADVAIR DISKUS [Suspect]
     Active Substance: FLUTICASONE PROPIONATE\SALMETEROL XINAFOATE
     Indication: CHRONIC OBSTRUCTIVE PULMONARY DISEASE
     Dosage: UNK UNK, U
     Dates: start: 201407

REACTIONS (8)
  - Musculoskeletal discomfort [Unknown]
  - Nephrolithiasis [Unknown]
  - Malaise [Unknown]
  - Eye disorder [Unknown]
  - Weight decreased [Unknown]
  - Weight gain poor [Unknown]
  - Gastroenteritis viral [Unknown]
  - Incorrect dose administered [Unknown]

NARRATIVE: CASE EVENT DATE: 20141225
